FAERS Safety Report 4608413-X (Version None)
Quarter: 2005Q1

REPORT INFORMATION
  Report Type: 
  Country: None (occurrence: None)
  Receive Date: 20050311
  Receipt Date: 20050311
  Transmission Date: 20050727
  Serious: Yes (Death)
  Sender: FDA-Public Use
  Company Number: None

PATIENT
  Age: 72 Year
  Sex: Male
  Weight: 85.9 kg

DRUGS (1)
  1. ENOXAPARIN (LOVENOX) 100 MG SYRINGE [Suspect]
     Indication: MYOCARDIAL INFARCTION
     Dosage: 90 MG SC Q 12 H
     Route: 058
     Dates: start: 20050209, end: 20050211

REACTIONS (1)
  - CEREBRAL HAEMORRHAGE [None]
